FAERS Safety Report 5113820-5 (Version None)
Quarter: 2006Q3

REPORT INFORMATION
  Report Type: 
  Country: None (occurrence: None)
  Receive Date: 20060925
  Receipt Date: 20060809
  Transmission Date: 20061208
  Serious: Yes (Life-Threatening, Hospitalization, Disabling)
  Sender: FDA-Public Use
  Company Number: GB-ROCHE-459182

PATIENT
  Sex: Male
  Weight: 104.5 kg

DRUGS (19)
  1. XENICAL [Suspect]
     Indication: OBESITY
     Route: 048
     Dates: start: 20060620, end: 20060720
  2. TRAMADOL HCL [Concomitant]
  3. ISOSORBIDE MONONITRATE [Concomitant]
  4. ALLOPURINOL [Concomitant]
  5. ATORVASTATIN [Concomitant]
  6. ASPIRIN [Concomitant]
  7. GLYCERYL TRINITRATE [Concomitant]
  8. LANSOPRAZOLE [Concomitant]
  9. VERAPAMIL HYDROCHLORIDE [Concomitant]
  10. FERROUS SULFATE TAB [Concomitant]
  11. MACROGOL [Concomitant]
     Route: 048
  12. FUROSEMIDE [Concomitant]
  13. DOXAZOSIN MESYLATE [Concomitant]
  14. PREDNISOLONE [Concomitant]
  15. PREDNISOLONE [Concomitant]
  16. NICORANDIL [Concomitant]
  17. ALFACALCIDOL [Concomitant]
  18. CALCIUM ACETATE [Concomitant]
  19. SCHERIPROCT [Concomitant]

REACTIONS (3)
  - DIARRHOEA [None]
  - RENAL FAILURE [None]
  - STEATORRHOEA [None]
